FAERS Safety Report 21809220 (Version 2)
Quarter: 2025Q3

REPORT INFORMATION
  Report Type: Spontaneous
  Country: EU (occurrence: EU)
  Receive Date: 20230103
  Receipt Date: 20250818
  Transmission Date: 20251020
  Serious: Yes (Congenital Anomaly, Other)
  Sender: TAKEDA
  Company Number: None

PATIENT
  Sex: Male

DRUGS (1)
  1. ENTYVIO [Suspect]
     Active Substance: VEDOLIZUMAB
     Indication: Crohn^s disease
     Route: 064

REACTIONS (2)
  - Congenital hydronephrosis [Not Recovered/Not Resolved]
  - Foetal exposure during pregnancy [Not Recovered/Not Resolved]

NARRATIVE: CASE EVENT DATE: 20220101
